FAERS Safety Report 20836658 (Version 3)
Quarter: 2024Q1

REPORT INFORMATION
  Report Type: Report from Study
  Country: IT (occurrence: IT)
  Receive Date: 20220517
  Receipt Date: 20240301
  Transmission Date: 20240410
  Serious: Yes (Other)
  Sender: FDA-Public Use
  Company Number: None

PATIENT
  Age: 47 Year
  Sex: Male

DRUGS (1)
  1. QUETIAPINE [Suspect]
     Active Substance: QUETIAPINE
     Indication: Product used for unknown indication
     Dosage: PROBABLE INAPPROPRIATE INTAKE OF THERAPY.
     Route: 065
     Dates: start: 20220327, end: 20220327

REACTIONS (5)
  - Incorrect dose administered [Recovering/Resolving]
  - Syncope [Recovering/Resolving]
  - Altered state of consciousness [Recovering/Resolving]
  - Sopor [Recovering/Resolving]
  - Depression [Recovering/Resolving]

NARRATIVE: CASE EVENT DATE: 20220328
